FAERS Safety Report 14603642 (Version 2)
Quarter: 2018Q1

REPORT INFORMATION
  Report Type: Report from Study
  Country: DE (occurrence: DE)
  Receive Date: 20180306
  Receipt Date: 20180313
  Transmission Date: 20180509
  Serious: Yes (Hospitalization)
  Sender: FDA-Public Use
  Company Number: DE-BAXTER-2018BAX006422

PATIENT
  Age: 80 Year
  Sex: Male
  Weight: 60 kg

DRUGS (3)
  1. ADDEL TRACE [Suspect]
     Active Substance: CHROMIC CATION\CUPRIC CATION\FERROUS CATION\FLUORIDE ION\IODIDE ION\MANGANESE CATION (2+)\SODIUM SELENIDE\ZINC CATION
     Indication: PARENTERAL NUTRITION
     Route: 042
     Dates: start: 20180216
  2. CLINIMIX E [Suspect]
     Active Substance: ALANINE\AMINO ACIDS\ARGININE\CALCIUM CHLORIDE\DEXTROSE\GLYCINE\HISTIDINE\ISOLEUCINE\LEUCINE\LYSINE\MAGNESIUM CHLORIDE\METHIONINE\PHENYLALANINE\POTASSIUM PHOSPHATE, DIBASIC\PROLINE\PROLINE, DL-\SERINE\SODIUM ACETATE\SODIUM CHLORIDE\THREONINE\TRYPTOPHAN\TYROSINE\VALINE
     Indication: PARENTERAL NUTRITION
     Route: 042
     Dates: start: 20180216
  3. CERNEVIT [Suspect]
     Active Substance: VITAMINS
     Indication: PARENTERAL NUTRITION
     Route: 042
     Dates: start: 20180216

REACTIONS (1)
  - Nausea [Not Recovered/Not Resolved]

NARRATIVE: CASE EVENT DATE: 20180220
